FAERS Safety Report 5988208-5 (Version None)
Quarter: 2008Q4

REPORT INFORMATION
  Report Type: 
  Country: None (occurrence: None)
  Receive Date: 20081210
  Receipt Date: 20081205
  Transmission Date: 20090506
  Serious: Yes (Death, Hospitalization)
  Sender: FDA-Public Use
  Company Number: FR-BRISTOL-MYERS SQUIBB COMPANY-14426290

PATIENT
  Age: 72 Year
  Sex: Female

DRUGS (12)
  1. ORENCIA [Suspect]
     Indication: RHEUMATOID ARTHRITIS
     Dosage: 1 INJECTION AT WEEK 0, WK 2 AND WK 4 (LAST INJECTION ADMINISTERED ON 25-MAR-2008)
     Route: 048
     Dates: start: 20080221, end: 20080325
  2. ENDOXAN [Suspect]
     Indication: RHEUMATOID ARTHRITIS
     Route: 042
     Dates: start: 20080730
  3. CORTANCYL [Concomitant]
     Indication: RHEUMATOID ARTHRITIS
     Dosage: 8MG IN THE MORNING,30MG,JUL2008:AT 60 MG DAILY
  4. FLUOXETINE [Concomitant]
     Indication: RHEUMATOID ARTHRITIS
     Dosage: 20 MG 1 TABLET TWICE DAILY
  5. MEDIATENSYL [Concomitant]
     Dosage: 1 TABLET TWICE DAILY
  6. MINOCIN [Concomitant]
     Dosage: 100 1 UNIT IN THE MORNING,WITHDRAWN  SINCE AUG 2007
  7. TIMOFEROL [Concomitant]
     Dosage: 1 TABLET TWICE DAILY
  8. OROCAL D3 [Concomitant]
     Dosage: 1 TABLET AT NOON
  9. MOPRAL [Concomitant]
     Dosage: 20 MG 1 TABLET IN THE EVENING
  10. PREVISCAN [Concomitant]
     Dosage: 1 UNIT IN THE EVENING
  11. ISOPTIN [Concomitant]
     Dosage: 240 LP 1 UNIT IN THE MORNING
  12. LEXOMIL [Concomitant]
     Dosage: LEXOMIL ROCHE ? UNIT BEFORE SLEEPING

REACTIONS (2)
  - CARDIAC DISORDER [None]
  - CHRONIC OBSTRUCTIVE PULMONARY DISEASE [None]
